FAERS Safety Report 14797434 (Version 1)
Quarter: 2018Q2

REPORT INFORMATION
  Report Type: Spontaneous
  Country: US (occurrence: US)
  Receive Date: 20180424
  Receipt Date: 20180424
  Transmission Date: 20180711
  Serious: No
  Sender: FDA-Public Use
  Company Number: US-TEVA-825039ACC

PATIENT
  Sex: Male

DRUGS (5)
  1. LAMOTRIGINE. [Concomitant]
     Active Substance: LAMOTRIGINE
     Route: 065
  2. SIMVASTATIN. [Concomitant]
     Active Substance: SIMVASTATIN
     Route: 065
  3. BABY ASA [Concomitant]
     Active Substance: ASPIRIN
     Route: 065
  4. OLANZAPINE. [Suspect]
     Active Substance: OLANZAPINE
  5. MULTIVITAMINS [Concomitant]
     Active Substance: VITAMINS
     Route: 065

REACTIONS (3)
  - Panic attack [Unknown]
  - Anxiety [Unknown]
  - Product substitution issue [Unknown]
